FAERS Safety Report 7668550-2 (Version None)
Quarter: 2011Q3

REPORT INFORMATION
  Report Type: 
  Country: None (occurrence: None)
  Receive Date: 20110808
  Receipt Date: 20110727
  Transmission Date: 20111222
  Serious: Yes (Hospitalization)
  Sender: FDA-Public Use
  Company Number: JP-SANOFI-AVENTIS-A01200906743

PATIENT
  Age: 53 Year
  Sex: Male

DRUGS (6)
  1. LITHIUM CARBONATE [Suspect]
     Indication: DEPRESSION
     Dosage: DOSE TEXT: DOSE INCREASED TO 400MG BID
     Route: 048
     Dates: end: 20090609
  2. ACETAMINOPHEN [Suspect]
     Indication: PYREXIA
     Route: 048
     Dates: start: 20090528, end: 20090606
  3. LEXOTAN [Suspect]
     Indication: DEPRESSION
     Route: 048
     Dates: end: 20090609
  4. VOLTAREN [Suspect]
     Indication: PYREXIA
     Route: 048
     Dates: start: 20090601, end: 20090606
  5. VEGETAMIN [Suspect]
     Indication: DEPRESSION
     Route: 048
     Dates: end: 20090609
  6. ZOLPIDEM [Suspect]
     Indication: DEPRESSION
     Route: 048
     Dates: end: 20090609

REACTIONS (2)
  - DRUG RASH WITH EOSINOPHILIA AND SYSTEMIC SYMPTOMS [None]
  - HEPATIC FUNCTION ABNORMAL [None]
